FAERS Safety Report 10215561 (Version 1)
Quarter: 2014Q2

REPORT INFORMATION
  Report Type: Spontaneous
  Country: JP (occurrence: JP)
  Receive Date: 20140604
  Receipt Date: 20140604
  Transmission Date: 20141212
  Serious: Yes (Other)
  Sender: FDA-Public Use
  Company Number: JP-ACCORD-024031

PATIENT
  Age: 51 Year
  Sex: Female

DRUGS (3)
  1. MYCOPHENOLIC ACID [Suspect]
     Indication: RENAL TRANSPLANT
     Dosage: PATIENT WAS ON 1000 MG FROM JAN-2012 AND WAS REDUCED TO 500 MG IN JAN-2013.
  2. TACROLIMUS [Suspect]
     Indication: RENAL TRANSPLANT
     Dosage: PATIENT WAS ON 1 MG FROM JAN-2012.PATIENT WAS ON 2 MG FROM JAN-12 AND DOSE INCREASED TO 16 MG/DAY IN
  3. METHYLPREDNISOLONE [Suspect]
     Indication: RENAL TRANSPLANT
     Dosage: PATIENT WAS ON 2 MG FROM JAN-12 AND DOSE INCREASED TO 16 MG/DAY IN JAN-13.

REACTIONS (4)
  - Atypical mycobacterial infection [Unknown]
  - Cytomegalovirus infection [Unknown]
  - JC virus infection [Unknown]
  - Tubulointerstitial nephritis [Recovering/Resolving]
